FAERS Safety Report 13681909 (Version 1)
Quarter: 2017Q2

REPORT INFORMATION
  Report Type: Spontaneous
  Country: US (occurrence: US)
  Receive Date: 20170623
  Receipt Date: 20170623
  Transmission Date: 20170830
  Serious: No
  Sender: FDA-Public Use
  Company Number: US-009507513-1706USA005377

PATIENT
  Age: 55 Year
  Sex: Female

DRUGS (2)
  1. ZETIA [Suspect]
     Active Substance: EZETIMIBE
     Indication: PHYTOSTEROLAEMIA
     Dosage: 10 MG, UNK
     Route: 048
  2. FENOFIBRATE. [Concomitant]
     Active Substance: FENOFIBRATE
     Indication: PHYTOSTEROLAEMIA
     Dosage: 145 MG, QD

REACTIONS (1)
  - Drug ineffective [Unknown]
